FAERS Safety Report 13310236 (Version 1)
Quarter: 2017Q1

REPORT INFORMATION
  Report Type: Spontaneous
  Country: SE (occurrence: SE)
  Receive Date: 20170308
  Receipt Date: 20170308
  Transmission Date: 20170428
  Serious: Yes (Hospitalization, Other)
  Sender: FDA-Public Use
  Company Number: SE-BEH-2017078700

PATIENT
  Age: 66 Year
  Sex: Male

DRUGS (9)
  1. BRILIQUE [Concomitant]
     Active Substance: TICAGRELOR
  2. PROPOFOL. [Concomitant]
     Active Substance: PROPOFOL
  3. ALBUREX [Suspect]
     Active Substance: ALBUMIN HUMAN
     Indication: RESUSCITATION
  4. HUMALOG [Concomitant]
     Active Substance: INSULIN LISPRO
  5. NORADRENALIN                       /00127501/ [Concomitant]
     Active Substance: NOREPINEPHRINE\NOREPINEPHRINE BITARTRATE
  6. SIMDAX [Concomitant]
     Active Substance: LEVOSIMENDAN
  7. TROMBYL [Concomitant]
     Active Substance: ASPIRIN
  8. ALBUREX [Suspect]
     Active Substance: ALBUMIN HUMAN
     Indication: HYPOVOLAEMIA
     Dosage: 200 G/L, BID, 2 PIECES
     Route: 042
     Dates: start: 20170210, end: 20170210
  9. FURIX [Concomitant]
     Active Substance: FUROSEMIDE

REACTIONS (3)
  - Rash erythematous [Recovered/Resolved]
  - Erythema [Recovered/Resolved]
  - Blister [Recovered/Resolved]

NARRATIVE: CASE EVENT DATE: 20170211
